FAERS Safety Report 14760485 (Version 1)
Quarter: 2018Q2

REPORT INFORMATION
  Report Type: Report from Study
  Country: None (occurrence: BR)
  Receive Date: 20180414
  Receipt Date: 20180414
  Transmission Date: 20180711
  Serious: Yes (Hospitalization, Other)
  Sender: FDA-Public Use
  Company Number: BR-ABBVIE-18K-020-2322753-00

PATIENT
  Age: 51 Year
  Sex: Female
  Weight: 59 kg

DRUGS (3)
  1. HUMIRA [Suspect]
     Active Substance: ADALIMUMAB
     Dosage: LOADING DOSE WEEK 2
     Route: 058
     Dates: start: 20170718, end: 20170718
  2. HUMIRA [Suspect]
     Active Substance: ADALIMUMAB
     Route: 058
  3. HUMIRA [Suspect]
     Active Substance: ADALIMUMAB
     Indication: CROHN^S DISEASE
     Dosage: LOADING DOSE WEEK 0
     Route: 058
     Dates: start: 20170704, end: 20170704

REACTIONS (6)
  - Flatulence [Not Recovered/Not Resolved]
  - Stress [Not Recovered/Not Resolved]
  - Anorectal disorder [Recovered/Resolved]
  - Gastrointestinal inflammation [Not Recovered/Not Resolved]
  - Dyspepsia [Not Recovered/Not Resolved]
  - Abdominal pain [Not Recovered/Not Resolved]

NARRATIVE: CASE EVENT DATE: 201710
